FAERS Safety Report 7814038-5 (Version None)
Quarter: 2011Q4

REPORT INFORMATION
  Report Type: 
  Country: None (occurrence: None)
  Receive Date: 20111014
  Receipt Date: 20111004
  Transmission Date: 20120403
  Serious: Yes (Hospitalization)
  Sender: FDA-Public Use
  Company Number: IE-JNJFOC-20111002687

PATIENT
  Sex: Female

DRUGS (7)
  1. DURAGESIC-100 [Suspect]
     Dosage: 12 YEARS AGO
     Route: 062
  2. DURAGESIC-100 [Suspect]
     Route: 062
  3. PAIN KILLERS [Concomitant]
     Indication: ANALGESIC THERAPY
     Route: 065
  4. DURAGESIC-100 [Suspect]
     Indication: INTERVERTEBRAL DISC DISORDER
     Route: 062
  5. DURAGESIC-100 [Suspect]
     Indication: NERVE INJURY
     Route: 062
  6. DURAGESIC-100 [Suspect]
     Route: 062
  7. DURAGESIC-100 [Suspect]
     Dosage: 12 YEARS AGO
     Route: 062

REACTIONS (10)
  - HYPERHIDROSIS [None]
  - WRONG TECHNIQUE IN DRUG USAGE PROCESS [None]
  - HEADACHE [None]
  - VOMITING [None]
  - PRODUCT QUALITY ISSUE [None]
  - PRODUCT ADHESION ISSUE [None]
  - PAIN [None]
  - DRUG ADMINISTRATION ERROR [None]
  - WITHDRAWAL SYNDROME [None]
  - DRUG EFFECT DECREASED [None]
